FAERS Safety Report 14363708 (Version 2)
Quarter: 2018Q4

REPORT INFORMATION
  Report Type: Report from Study
  Country: ES (occurrence: ES)
  Receive Date: 20180108
  Receipt Date: 20181228
  Transmission Date: 20190204
  Serious: Yes (Hospitalization)
  Sender: FDA-Public Use
  Company Number: ES-MYLANLABS-2018M1001471

PATIENT
  Age: 91 Year
  Sex: Male

DRUGS (7)
  1. ALDACTONE [Interacting]
     Active Substance: SPIRONOLACTONE
     Indication: PRODUCT USED FOR UNKNOWN INDICATION
     Dosage: 1-0-0
     Route: 048
     Dates: start: 20150601, end: 20170413
  2. SINTROM [Concomitant]
     Active Substance: ACENOCOUMAROL
     Indication: ATRIAL FIBRILLATION
     Dosage: SP
     Route: 048
     Dates: start: 20150601
  3. OMEPRAZOL 20 [Concomitant]
     Active Substance: OMEPRAZOLE
     Indication: PROPHYLAXIS AGAINST GASTROINTESTINAL ULCER
     Dosage: 1 CP
     Route: 048
     Dates: start: 20150601
  4. THERVAN 10 [Concomitant]
     Indication: DYSLIPIDAEMIA
     Dosage: 0-0-1
     Route: 048
     Dates: start: 19930101
  5. ENALAPRIL [Interacting]
     Active Substance: ENALAPRIL
     Indication: PRODUCT USED FOR UNKNOWN INDICATION
     Dosage: 1-0-0
     Route: 048
     Dates: start: 19930101, end: 20170413
  6. TORASEMIDE [Suspect]
     Active Substance: TORSEMIDE
     Indication: PRODUCT USED FOR UNKNOWN INDICATION
     Dosage: 1-0-0
     Route: 048
     Dates: start: 20150601
  7. AVIDART [Concomitant]
     Active Substance: DUTASTERIDE
     Indication: BENIGN PROSTATIC HYPERPLASIA
     Dosage: 1-0-0
     Route: 048
     Dates: start: 20070101

REACTIONS (3)
  - Acute kidney injury [Recovered/Resolved]
  - Labelled drug-drug interaction medication error [Unknown]
  - Hyperkalaemia [Recovered/Resolved]

NARRATIVE: CASE EVENT DATE: 20170412
